FAERS Safety Report 22659896 (Version 2)
Quarter: 2025Q2

REPORT INFORMATION
  Report Type: Spontaneous
  Country: AU (occurrence: AU)
  Receive Date: 20230630
  Receipt Date: 20250624
  Transmission Date: 20250717
  Serious: Yes (Other)
  Sender: ORGANON
  Company Number: AU-ORGANON-O2306AUS003447

PATIENT
  Age: 52 Year
  Sex: Female

DRUGS (12)
  1. MONTELUKAST SODIUM [Suspect]
     Active Substance: MONTELUKAST SODIUM
  2. NOVORAPID [Suspect]
     Active Substance: INSULIN ASPART
  3. INSULIN GLARGINE [Suspect]
     Active Substance: INSULIN GLARGINE
  4. PHENERGAN [Suspect]
     Active Substance: PROMETHAZINE HYDROCHLORIDE
  5. ROSUVASTATIN CALCIUM [Suspect]
     Active Substance: ROSUVASTATIN CALCIUM
  6. ALBUTEROL SULFATE [Suspect]
     Active Substance: ALBUTEROL SULFATE
  7. ANASTROZOLE [Suspect]
     Active Substance: ANASTROZOLE
  8. APIXABAN [Suspect]
     Active Substance: APIXABAN
  9. ESOMEPRAZOLE [Suspect]
     Active Substance: ESOMEPRAZOLE
  10. FAMOTIDINE [Suspect]
     Active Substance: FAMOTIDINE
  11. LORATADINE [Suspect]
     Active Substance: LORATADINE
  12. METFORMIN HYDROCHLORIDE [Suspect]
     Active Substance: METFORMIN HYDROCHLORIDE

REACTIONS (12)
  - Anaphylactic reaction [Unknown]
  - Pneumonia [Unknown]
  - Respiratory failure [Unknown]
  - COVID-19 [Unknown]
  - Drug intolerance [Unknown]
  - Dyspnoea [Unknown]
  - Mouth haemorrhage [Unknown]
  - Obstructive airways disorder [Unknown]
  - Pharyngeal swelling [Unknown]
  - Swollen tongue [Unknown]
  - Upper respiratory tract infection [Unknown]
  - Urticaria [Unknown]
